FAERS Safety Report 10568011 (Version 1)
Quarter: 2014Q4

REPORT INFORMATION
  Report Type: Spontaneous
  Country: US (occurrence: None)
  Receive Date: 20141024
  Receipt Date: 20141024
  Transmission Date: 20150529
  Serious: Yes (Other)
  Sender: FDA-Public Use
  Company Number: 1419797

PATIENT
  Age: 63 Year
  Sex: Female

DRUGS (4)
  1. VEMURAFENIB [Suspect]
     Active Substance: VEMURAFENIB
     Indication: METASTATIC MALIGNANT MELANOMA
  2. ACITRETIN (ACITRETIN) [Suspect]
     Active Substance: ACITRETIN
     Indication: SKIN PAPILLOMA
  3. ACITRETIN (ACITRETIN) [Suspect]
     Active Substance: ACITRETIN
     Indication: SQUAMOUS CELL CARCINOMA OF SKIN
  4. ACITRETIN (ACITRETIN) [Suspect]
     Active Substance: ACITRETIN
     Indication: ACTINIC KERATOSIS

REACTIONS (4)
  - Xerosis [None]
  - Actinic keratosis [None]
  - Skin papilloma [None]
  - Squamous cell carcinoma of skin [None]
